APPROVED DRUG PRODUCT: CLEMASTINE FUMARATE
Active Ingredient: CLEMASTINE FUMARATE
Strength: 1.34MG
Dosage Form/Route: TABLET;ORAL
Application: A073282 | Product #002
Applicant: ANI PHARMACEUTICALS INC
Approved: Dec 3, 1992 | RLD: No | RS: No | Type: DISCN